FAERS Safety Report 5234774-7 (Version None)
Quarter: 2007Q1

REPORT INFORMATION
  Report Type: 
  Country: None (occurrence: None)
  Receive Date: 20070209
  Receipt Date: 20070207
  Transmission Date: 20070707
  Serious: Yes (Other)
  Sender: FDA-Public Use
  Company Number: FR-ROXANE LABORATORIES, INC-2007-DE-00782GD

PATIENT
  Age: 56 Year
  Sex: Male

DRUGS (3)
  1. PREDNISONE [Suspect]
     Indication: ALLERGIC GRANULOMATOUS ANGIITIS
     Dosage: 1 MG/KG (START ON DAY 4) AND THEN PROGRESSIVELY TAPERED
     Route: 048
  2. CYCLOPHOSPHAMIDE [Suspect]
     Indication: ALLERGIC GRANULOMATOUS ANGIITIS
     Dosage: FIRST PULSE OF MONTHLY TREATMENT
     Route: 042
  3. METHYLPREDNISOLONE 16MG TAB [Suspect]
     Indication: ALLERGIC GRANULOMATOUS ANGIITIS
     Route: 042

REACTIONS (1)
  - ABDOMINAL PAIN [None]
